FAERS Safety Report 5625194-1 (Version None)
Quarter: 2008Q1

REPORT INFORMATION
  Report Type: 
  Country: None (occurrence: None)
  Receive Date: 20080213
  Receipt Date: 20080205
  Transmission Date: 20080703
  Serious: Yes (Hospitalization)
  Sender: FDA-Public Use
  Company Number: US-GENENTECH-250945

PATIENT
  Sex: Female
  Weight: 76.644 kg

DRUGS (2)
  1. BEVACIZUMAB [Suspect]
     Indication: BREAST CANCER METASTATIC
     Dosage: 1550 MG, Q3W
     Route: 042
     Dates: start: 20070115
  2. ABRAXANE [Suspect]
     Indication: NON-SMALL CELL LUNG CANCER
     Dosage: 375 MG, UNK
     Dates: start: 20070115

REACTIONS (1)
  - TRACHEOMALACIA [None]
